FAERS Safety Report 24706592 (Version 3)
Quarter: 2025Q1

REPORT INFORMATION
  Report Type: Spontaneous
  Country: US (occurrence: US)
  Receive Date: 20241206
  Receipt Date: 20250108
  Transmission Date: 20250408
  Serious: No
  Sender: Haleon PLC
  Company Number: US-HALEON-2213525

PATIENT
  Sex: Female
  Weight: 78.018 kg

DRUGS (1)
  1. ADVIL LIQUI-GELS [Suspect]
     Active Substance: IBUPROFEN
     Indication: Myalgia
     Dates: end: 20241204

REACTIONS (3)
  - Dysgeusia [Recovered/Resolved]
  - Poor quality product administered [Unknown]
  - Product complaint [Unknown]
